FAERS Safety Report 11600869 (Version 1)
Quarter: 2015Q4

REPORT INFORMATION
  Report Type: Spontaneous
  Country: US (occurrence: US)
  Receive Date: 20151006
  Receipt Date: 20151006
  Transmission Date: 20160304
  Serious: No
  Sender: FDA-Public Use
  Company Number: US-AMGEN-USASP2015007165

PATIENT
  Age: 86 Year
  Sex: Female

DRUGS (1)
  1. PROLIA [Suspect]
     Active Substance: DENOSUMAB
     Indication: PRODUCT USED FOR UNKNOWN INDICATION
     Dosage: UNK UNK, Q6MO
     Route: 065

REACTIONS (9)
  - Memory impairment [Unknown]
  - Gingival disorder [Unknown]
  - Oral pain [Unknown]
  - Gingival pain [Unknown]
  - Adverse event [Unknown]
  - Nasal mucosal discolouration [Unknown]
  - Stomatitis [Unknown]
  - Nasal congestion [Unknown]
  - Hypersensitivity [Recovering/Resolving]
